FAERS Safety Report 6340684-4 (Version None)
Quarter: 2009Q3

REPORT INFORMATION
  Report Type: 
  Country: None (occurrence: None)
  Receive Date: 20090902
  Receipt Date: 20090902
  Transmission Date: 20100115
  Serious: Yes (Life-Threatening, Hospitalization)
  Sender: FDA-Public Use
  Company Number: None

PATIENT
  Age: 74 Year
  Sex: Female

DRUGS (2)
  1. AZILECT [Suspect]
     Indication: PARKINSON'S DISEASE
     Dosage: 1MG DAILY PO
     Route: 048
     Dates: start: 20090804, end: 20090828
  2. PROZAC [Suspect]
     Indication: DEPRESSION
     Dosage: DAILY PO
     Route: 048

REACTIONS (5)
  - DEPRESSED LEVEL OF CONSCIOUSNESS [None]
  - HYPOTENSION [None]
  - MUSCLE RIGIDITY [None]
  - MYOCLONUS [None]
  - SEROTONIN SYNDROME [None]
